FAERS Safety Report 6417144-5 (Version None)
Quarter: 2009Q4

REPORT INFORMATION
  Report Type: 
  Country: None (occurrence: None)
  Receive Date: 20091027
  Receipt Date: 20091027
  Transmission Date: 20100525
  Serious: Yes (Other)
  Sender: FDA-Public Use
  Company Number: None

PATIENT
  Sex: Female
  Weight: 68.0396 kg

DRUGS (2)
  1. CASODEX [Suspect]
     Indication: NEOPLASM MALIGNANT
     Dosage: 1 QD PO
     Route: 048
  2. KAPIDEX [Suspect]
     Dosage: 1 QD PO
     Route: 048

REACTIONS (3)
  - DRUG NAME CONFUSION [None]
  - INTERCEPTED DRUG DISPENSING ERROR [None]
  - MEDICATION ERROR [None]
